FAERS Safety Report 24265495 (Version 1)
Quarter: 2024Q3

REPORT INFORMATION
  Report Type: Spontaneous
  Country: IE (occurrence: IE)
  Receive Date: 20240829
  Receipt Date: 20240829
  Transmission Date: 20241017
  Serious: Yes (Hospitalization, Disabling)
  Sender: SANDOZ
  Company Number: IE-MLMSERVICE-20240722-PI138854-00336-1

PATIENT
  Age: 63 Year
  Sex: Female

DRUGS (7)
  1. ZOLEDRONIC ACID [Suspect]
     Active Substance: ZOLEDRONIC ACID
     Indication: Anxiety
     Dosage: ADJUVANT THERAPY WITH HIGH DOSE ZOLEDRONIC ACID 4 MG EVERY 4 WEEKS FOR 6 MONTHS, FOLLOWED BY 4 MG EV
     Route: 065
  2. ZOLEDRONIC ACID [Suspect]
     Active Substance: ZOLEDRONIC ACID
     Indication: Depression
     Dosage: ADJUVANT THERAPY WITH HIGH DOSE ZOLEDRONIC ACID 4 MG EVERY 4 WEEKS FOR 6 MONTHS, FOLLOWED BY 4 MG EV
     Route: 065
  3. ZOLEDRONIC ACID [Suspect]
     Active Substance: ZOLEDRONIC ACID
     Dosage: ADJUVANT THERAPY WITH HIGH DOSE ZOLEDRONIC ACID 4 MG EVERY 4 WEEKS FOR 6 MONTHS, FOLLOWED BY 4 MG EV
     Route: 065
  4. ESCITALOPRAM [Concomitant]
     Active Substance: ESCITALOPRAM OXALATE
     Indication: Anxiety
     Dosage: UNK
     Route: 065
  5. ESCITALOPRAM [Concomitant]
     Active Substance: ESCITALOPRAM OXALATE
     Indication: Depression
  6. LETROZOLE [Concomitant]
     Active Substance: LETROZOLE
     Indication: Hormone therapy
     Dosage: UNK
     Route: 065
  7. LOSARTAN [Concomitant]
     Active Substance: LOSARTAN\LOSARTAN POTASSIUM
     Indication: Hypertension
     Dosage: UNK
     Route: 065

REACTIONS (2)
  - Atypical fracture [Recovered/Resolved]
  - Haematoma [Unknown]
